FAERS Safety Report 23886884 (Version 1)
Quarter: 2024Q2

REPORT INFORMATION
  Report Type: Report from Study
  Country: US (occurrence: US)
  Receive Date: 20240522
  Receipt Date: 20240522
  Transmission Date: 20240716
  Serious: Yes (Other)
  Sender: FDA-Public Use
  Company Number: US-ABBVIE-5769049

PATIENT
  Sex: Female

DRUGS (1)
  1. HUMIRA [Suspect]
     Active Substance: ADALIMUMAB
     Indication: Psoriasis
     Dosage: FORM STRENGTH: 40 MILLIGRAM
     Route: 058
     Dates: start: 20220207

REACTIONS (4)
  - Blood iron decreased [Recovered/Resolved]
  - Nasopharyngitis [Recovering/Resolving]
  - Psoriasis [Recovered/Resolved]
  - Multiple allergies [Recovering/Resolving]
